FAERS Safety Report 19230028 (Version 2)
Quarter: 2021Q2

REPORT INFORMATION
  Report Type: Report from Study
  Country: None (occurrence: US)
  Receive Date: 20210506
  Receipt Date: 20210513
  Transmission Date: 20210717
  Serious: Yes (Other)
  Sender: FDA-Public Use
  Company Number: US-ABBVIE-21K-163-3891850-00

PATIENT
  Sex: Male
  Weight: 99.88 kg

DRUGS (3)
  1. COVID?19 VACCINE NOS. [Concomitant]
     Active Substance: COVID-19 VACCINE NOS
     Route: 030
     Dates: start: 20210325, end: 20210325
  2. SKYRIZI [Suspect]
     Active Substance: RISANKIZUMAB-RZAA
     Indication: PSORIASIS
     Route: 058
     Dates: start: 2020, end: 2021
  3. COVID?19 VACCINE NOS. [Concomitant]
     Active Substance: COVID-19 VACCINE NOS
     Indication: COVID-19 IMMUNISATION
     Route: 030
     Dates: start: 20210306, end: 20210306

REACTIONS (2)
  - Back disorder [Unknown]
  - Carpal tunnel syndrome [Recovered/Resolved]
